FAERS Safety Report 8860518 (Version 2)
Quarter: 2012Q4

REPORT INFORMATION
  Report Type: 
  Country: US (occurrence: US)
  Receive Date: 20121025
  Receipt Date: 20121031
  Transmission Date: 20130627
  Serious: Yes (Other)
  Sender: FDA-Public Use
  Company Number: PHHY2012US094754

PATIENT
  Age: 46 Year
  Sex: Female

DRUGS (3)
  1. IMATINIB [Suspect]
     Indication: CHRONIC MYELOID LEUKAEMIA
     Dosage: UNK
  2. ZILEUTON [Concomitant]
  3. ALCOHOL [Concomitant]

REACTIONS (4)
  - Acute hepatic failure [Unknown]
  - Liver injury [Unknown]
  - Hepatic necrosis [Unknown]
  - Liver function test abnormal [Unknown]
